FAERS Safety Report 18932809 (Version 1)
Quarter: 2021Q1

REPORT INFORMATION
  Report Type: Spontaneous
  Country: GB (occurrence: GB)
  Receive Date: 20210224
  Receipt Date: 20210224
  Transmission Date: 20210420
  Serious: Yes (Other)
  Sender: FDA-Public Use
  Company Number: GB-ACCORD-217805

PATIENT
  Age: 60 Year
  Sex: Male
  Weight: 116 kg

DRUGS (18)
  1. PARAFFIN [Concomitant]
     Active Substance: PARAFFIN
     Dosage: APPLY TWICE DAILY
     Dates: start: 20210211
  2. FINASTERIDE. [Concomitant]
     Active Substance: FINASTERIDE
     Dates: start: 20201113
  3. LACIDIPINE [Concomitant]
     Active Substance: LACIDIPINE
     Dates: start: 20201104
  4. LANSOPRAZOLE. [Concomitant]
     Active Substance: LANSOPRAZOLE
     Dosage: EACH MORNING
     Dates: start: 20201103
  5. PRAVASTATIN. [Concomitant]
     Active Substance: PRAVASTATIN
     Dosage: AT NIGHT
     Dates: start: 20201103
  6. RANOLAZINE/RANOLAZINE HYDROCHLORIDE [Concomitant]
     Active Substance: RANOLAZINE HYDROCHLORIDE
     Dates: start: 20201103
  7. AMLODIPINE [Suspect]
     Active Substance: AMLODIPINE BESYLATE
     Indication: PRODUCT USED FOR UNKNOWN INDICATION
     Dates: start: 202011
  8. GLYCERYL TRINITRATE [Concomitant]
     Active Substance: NITROGLYCERIN
     Dates: start: 20201103
  9. NICORANDIL [Concomitant]
     Active Substance: NICORANDIL
     Dates: start: 20201103
  10. TIMODINE [Concomitant]
     Dosage: APPLY
     Dates: start: 20201118, end: 20201202
  11. ISOTARD XL [Concomitant]
     Dates: start: 20201103
  12. TRIMETHOPRIM. [Concomitant]
     Active Substance: TRIMETHOPRIM
     Dosage: TO TREAT URINE .
     Dates: start: 20201118, end: 20201125
  13. ASPIRIN. [Concomitant]
     Active Substance: ASPIRIN
     Dates: start: 20201103
  14. CETIRIZINE [Concomitant]
     Active Substance: CETIRIZINE HYDROCHLORIDE
     Dates: start: 20201103
  15. LOTRIDERM [Concomitant]
     Active Substance: BETAMETHASONE DIPROPIONATE\CLOTRIMAZOLE
     Dosage: APPLY
     Dates: start: 20210111, end: 20210125
  16. BISOPROLOL [Concomitant]
     Active Substance: BISOPROLOL
     Dates: start: 20201103
  17. RAMIPRIL. [Concomitant]
     Active Substance: RAMIPRIL
     Dates: start: 20201103
  18. TERBINAFINE/TERBINAFINE HYDROCHLORIDE [Concomitant]
     Active Substance: TERBINAFINE HYDROCHLORIDE
     Indication: FUNGAL INFECTION
     Dates: start: 20210127, end: 20210210

REACTIONS (1)
  - Eczema [Unknown]
